FAERS Safety Report 13946821 (Version 1)
Quarter: 2017Q3

REPORT INFORMATION
  Report Type: Report from Study
  Country: KR (occurrence: KR)
  Receive Date: 20170907
  Receipt Date: 20170907
  Transmission Date: 20171128
  Serious: Yes (Other)
  Sender: FDA-Public Use
  Company Number: KR-TEVA-804467ISR

PATIENT
  Age: 56 Year
  Sex: Female
  Weight: 41 kg

DRUGS (10)
  1. LEVODOPA, CARBIDOPA MONOHYDRATE, ENTACAPONE [Concomitant]
     Dosage: 4.5 DOSAGE FORMS DAILY;
     Dates: start: 20150810
  2. CYANOCOBALAMIN, DL-CARNITINE HYDROCHLORIDE [Concomitant]
     Dosage: 1 DOSAGE FORMS DAILY;
     Dates: start: 20150302, end: 20150621
  3. CYPROHEPTADINE OROTATE, LYSINE HYDROCHLORIDE [Concomitant]
     Dosage: 1 DOSAGE FORMS DAILY;
     Dates: start: 20150622
  4. PRAMIPEXOLE DIHYDROCHLORIDE. [Concomitant]
     Active Substance: PRAMIPEXOLE DIHYDROCHLORIDE
     Dosage: 3 DOSAGE FORMS DAILY;
     Route: 065
     Dates: start: 20150309
  5. ACETYL-L-CARNITINE HYDROCHLORIDE [Concomitant]
     Dosage: 3 DOSAGE FORMS DAILY;
     Dates: start: 20150302
  6. LEVODOPA, CARBIDOPA MONOHYDRATE, ENTACAPONE [Concomitant]
     Dosage: 3 DOSAGE FORMS DAILY;
     Dates: start: 20150302, end: 20150621
  7. LEVODOPA, CARBIDOPA MONOHYDRATE, ENTACAPONE [Concomitant]
     Dosage: 3 DOSAGE FORMS DAILY;
     Dates: start: 20150622, end: 20150809
  8. ESOMEPRAZOLE MAGNESIUM TRIHYDRATE [Concomitant]
     Active Substance: ESOMEPRAZOLE MAGNESIUM
  9. AZILECT [Suspect]
     Active Substance: RASAGILINE MESYLATE
     Indication: PARKINSON^S DISEASE
     Dosage: 1 MILLIGRAM DAILY;
     Route: 048
     Dates: start: 20150518
  10. AMANTADINE SULFATE [Concomitant]
     Active Substance: AMANTADINE SULFATE
     Dosage: 2 DOSAGE FORMS DAILY;
     Dates: start: 20150302

REACTIONS (3)
  - Gastric ulcer [Recovering/Resolving]
  - Dyskinesia [Recovering/Resolving]
  - Muscular weakness [Recovering/Resolving]

NARRATIVE: CASE EVENT DATE: 20150520
